FAERS Safety Report 9895621 (Version 1)
Quarter: 2014Q1

REPORT INFORMATION
  Report Type: Spontaneous
  Country: US (occurrence: US)
  Receive Date: 20140213
  Receipt Date: 20140213
  Transmission Date: 20141002
  Serious: No
  Sender: FDA-Public Use
  Company Number: US-BRISTOL-MYERS SQUIBB COMPANY-17388083

PATIENT
  Age: 65 Year
  Sex: Female

DRUGS (10)
  1. ORENCIA [Suspect]
     Indication: RHEUMATOID ARTHRITIS
     Dosage: 1 DOSE
     Route: 042
     Dates: start: 201207, end: 201207
  2. ARAVA [Concomitant]
  3. METHOTREXATE [Concomitant]
  4. METOPROLOL [Concomitant]
  5. LOSARTAN [Concomitant]
  6. METFORMIN [Concomitant]
  7. VITAMIN D [Concomitant]
  8. CLONAZEPAM [Concomitant]
  9. ATORVASTATIN [Concomitant]
  10. PERCOCET [Concomitant]

REACTIONS (1)
  - Chest pain [Unknown]
